FAERS Safety Report 5799914-X (Version None)
Quarter: 2008Q3

REPORT INFORMATION
  Report Type: 
  Country: None (occurrence: None)
  Receive Date: 20080703
  Receipt Date: 20080627
  Transmission Date: 20090109
  Serious: Yes (Hospitalization)
  Sender: FDA-Public Use
  Company Number: US-AVENTIS-200814005US

PATIENT
  Sex: Male

DRUGS (5)
  1. LANTUS [Suspect]
     Dosage: DOSE: 10 U AM, 18 U AT NOON AND 10 U AT NIGHT
     Route: 058
     Dates: start: 19960101
  2. NOVOLOG [Suspect]
     Dosage: DOSE: UNK
  3. CYMBALTA [Concomitant]
     Dosage: DOSE: UNK
  4. LISINOPRIL [Concomitant]
     Dosage: DOSE: UNK
  5. LOVASTATIN [Concomitant]
     Dosage: DOSE: UNK

REACTIONS (5)
  - BLOOD GLUCOSE INCREASED [None]
  - HAEMATEMESIS [None]
  - HYPERGLYCAEMIA [None]
  - KETOACIDOSIS [None]
  - PALPITATIONS [None]
